FAERS Safety Report 10670910 (Version 2)
Quarter: 2014Q4

REPORT INFORMATION
  Report Type: Spontaneous
  Country: US (occurrence: US)
  Receive Date: 20141223
  Receipt Date: 20141223
  Transmission Date: 20150529
  Serious: No
  Sender: FDA-Public Use
  Company Number: US-MYLANLABS-2014S1008181

PATIENT
  Age: 64 Year
  Sex: Female
  Weight: 77 kg

DRUGS (5)
  1. LEVETIRACETAM TABLETS, USP [Suspect]
     Active Substance: LEVETIRACETAM
     Indication: EPILEPSY
  2. LEVETIRACETAM TABLETS, USP [Suspect]
     Active Substance: LEVETIRACETAM
     Dosage: 1500 MG,HS
     Route: 048
     Dates: end: 20140418
  3. LEVETIRACETAM TABLETS, USP [Suspect]
     Active Substance: LEVETIRACETAM
     Dosage: UNK
  4. LEVETIRACETAM TABLETS, USP [Suspect]
     Active Substance: LEVETIRACETAM
     Dosage: 1000 MG,AM
     Route: 048
     Dates: start: 2011, end: 20140418
  5. LEVETIRACETAM TABLETS, USP [Suspect]
     Active Substance: LEVETIRACETAM
     Indication: SEIZURE

REACTIONS (7)
  - Headache [Recovered/Resolved]
  - Feeling abnormal [Recovered/Resolved]
  - Aphasia [Recovered/Resolved]
  - Drug effect increased [Recovered/Resolved]
  - Hangover [Recovered/Resolved]
  - Tinnitus [Recovered/Resolved]
  - Dizziness [Recovered/Resolved]

NARRATIVE: CASE EVENT DATE: 20140407
